FAERS Safety Report 12400934 (Version 1)
Quarter: 2016Q2

REPORT INFORMATION
  Report Type: Spontaneous
  Country: US (occurrence: None)
  Receive Date: 20160524
  Receipt Date: 20160524
  Transmission Date: 20160815
  Serious: Yes (Hospitalization, Disabling)
  Sender: FDA-Public Use
  Company Number: None

PATIENT
  Age: 58 Year
  Sex: Male
  Weight: 108.86 kg

DRUGS (1)
  1. ABILIFY [Suspect]
     Active Substance: ARIPIPRAZOLE
     Indication: CEREBRAL DISORDER
     Dosage: 1 PILL A.M. 1 A DAY AM. ORAL
     Route: 048
     Dates: start: 20160102, end: 20160501

REACTIONS (4)
  - Hallucination [None]
  - Aggression [None]
  - Agitation [None]
  - Homicidal ideation [None]

NARRATIVE: CASE EVENT DATE: 20160216
